FAERS Safety Report 13840885 (Version 1)
Quarter: 2017Q3

REPORT INFORMATION
  Report Type: Report from Study
  Country: TR (occurrence: TR)
  Receive Date: 20170807
  Receipt Date: 20170807
  Transmission Date: 20171127
  Serious: Yes (Other)
  Sender: FDA-Public Use
  Company Number: TR-GLAXOSMITHKLINE-PT2017GSK119817

PATIENT
  Sex: Female

DRUGS (1)
  1. LAMOTRIGINE. [Suspect]
     Active Substance: LAMOTRIGINE
     Indication: EPILEPSY
     Route: 064

REACTIONS (5)
  - Dyspnoea [Unknown]
  - Apnoea [Unknown]
  - Respiratory depression [Unknown]
  - Cyanosis [Unknown]
  - Foetal exposure during pregnancy [Unknown]
